FAERS Safety Report 24432351 (Version 1)
Quarter: 2024Q4

REPORT INFORMATION
  Report Type: Spontaneous
  Country: RU (occurrence: RU)
  Receive Date: 20241014
  Receipt Date: 20241014
  Transmission Date: 20250114
  Serious: Yes (Life-Threatening)
  Sender: SANOFI AVENTIS
  Company Number: RU-SA-2024SA292816

PATIENT
  Age: 32 Year
  Sex: Female

DRUGS (1)
  1. APIDRA SOLOSTAR [Suspect]
     Active Substance: INSULIN GLULISINE
     Indication: Diabetes mellitus
     Dosage: 60 U, QD
     Route: 058
     Dates: start: 20240904, end: 20240910

REACTIONS (7)
  - Urine ketone body present [Recovered/Resolved with Sequelae]
  - Nausea [Recovered/Resolved with Sequelae]
  - Vomiting [Recovered/Resolved with Sequelae]
  - Blood glucose abnormal [Recovered/Resolved with Sequelae]
  - Drug ineffective [Unknown]
  - Asthenia [Unknown]
  - Pain [Unknown]

NARRATIVE: CASE EVENT DATE: 20240101
